FAERS Safety Report 5951871-9 (Version None)
Quarter: 2008Q4

REPORT INFORMATION
  Report Type: 
  Country: None (occurrence: None)
  Receive Date: 20081113
  Receipt Date: 20081106
  Transmission Date: 20090506
  Serious: Yes (Other)
  Sender: FDA-Public Use
  Company Number: US-ELI_LILLY_AND_COMPANY-US200811001531

PATIENT
  Sex: Female

DRUGS (7)
  1. HUMULIN N [Suspect]
     Dates: start: 20081010, end: 20081104
  2. HUMULIN 70/30 [Suspect]
     Dates: start: 20081104
  3. GLIPIZIDE [Concomitant]
  4. PLAVIX [Concomitant]
  5. ALBUTEROL [Concomitant]
  6. NORVASC [Concomitant]
     Indication: HYPERTENSION
  7. LANTUS [Concomitant]

REACTIONS (15)
  - ADVERSE DRUG REACTION [None]
  - BLOOD GLUCOSE DECREASED [None]
  - BLOOD GLUCOSE INCREASED [None]
  - CHILLS [None]
  - DECREASED APPETITE [None]
  - DIZZINESS [None]
  - DRUG HYPERSENSITIVITY [None]
  - FATIGUE [None]
  - FEELING COLD [None]
  - GAIT DISTURBANCE [None]
  - MALAISE [None]
  - MEMORY IMPAIRMENT [None]
  - NAUSEA [None]
  - TRANSIENT ISCHAEMIC ATTACK [None]
  - TREMOR [None]
